FAERS Safety Report 10240004 (Version 1)
Quarter: 2014Q2

REPORT INFORMATION
  Report Type: Spontaneous
  Country: GB (occurrence: GB)
  Receive Date: 20140616
  Receipt Date: 20140616
  Transmission Date: 20141212
  Serious: Yes (Disabling, Other)
  Sender: FDA-Public Use
  Company Number: GB-MYLANLABS-2014S1013256

PATIENT
  Age: 73 Year
  Sex: Female
  Weight: 70.1 kg

DRUGS (2)
  1. ALENDRONATE [Suspect]
     Indication: OSTEOPOROSIS
     Route: 048
     Dates: start: 2008, end: 20140301
  2. ETANERCEPT [Suspect]
     Indication: RHEUMATOID ARTHRITIS
     Route: 058
     Dates: start: 20130404, end: 20140514

REACTIONS (2)
  - Osteonecrosis of jaw [Not Recovered/Not Resolved]
  - Gingivitis [Unknown]
